FAERS Safety Report 5652878-1 (Version None)
Quarter: 2008Q1

REPORT INFORMATION
  Report Type: 
  Country: None (occurrence: None)
  Receive Date: 20080306
  Receipt Date: 20080222
  Transmission Date: 20080703
  Serious: Yes (Hospitalization, Other)
  Sender: FDA-Public Use
  Company Number: JP-ASTRAZENECA-2008AP01379

PATIENT
  Age: 57 Year
  Sex: Male
  Weight: 52 kg

DRUGS (5)
  1. IRESSA [Suspect]
     Indication: NON-SMALL CELL LUNG CANCER
     Route: 048
     Dates: start: 20080108, end: 20080213
  2. FOIPAN [Concomitant]
     Indication: PANCREATITIS CHRONIC
     Route: 048
     Dates: start: 20061226, end: 20080217
  3. MAGMITT [Concomitant]
     Indication: CONSTIPATION
     Route: 048
     Dates: start: 20070716, end: 20080217
  4. LENDORMIN [Concomitant]
     Indication: INSOMNIA
     Route: 048
     Dates: start: 20070807, end: 20080217
  5. FERROMIA [Concomitant]
     Indication: ANAEMIA
     Route: 048
     Dates: start: 20070913, end: 20080217

REACTIONS (5)
  - BRONCHOPNEUMONIA [None]
  - CONVULSION [None]
  - HEADACHE [None]
  - PANCREATITIS ACUTE [None]
  - RASH [None]
